FAERS Safety Report 9249085 (Version 2)
Quarter: 2013Q3

REPORT INFORMATION
  Report Type: Spontaneous
  Country: BE (occurrence: BE)
  Receive Date: 20130423
  Receipt Date: 20130715
  Transmission Date: 20140515
  Serious: Yes (Other)
  Sender: FDA-Public Use
  Company Number: BE-ELI_LILLY_AND_COMPANY-BE201304004518

PATIENT
  Age: 26 Year
  Sex: Male
  Weight: 87 kg

DRUGS (3)
  1. ZYPADHERA [Suspect]
     Indication: SCHIZOPHRENIA
     Dosage: 150 MG, UNKNOWN
     Route: 030
  2. ZYPADHERA [Suspect]
     Dosage: 210 MG, EVERY 2 WEEKS
     Dates: start: 201204
  3. ZYPADHERA [Suspect]
     Dosage: 300 MG, MONTHLY (1/M)

REACTIONS (13)
  - Hypotension [Unknown]
  - Syncope [Unknown]
  - Somnolence [Unknown]
  - Sedation [Unknown]
  - Anxiety [Unknown]
  - Ataxia [Unknown]
  - Confusional state [Unknown]
  - Dizziness [Unknown]
  - Asthenia [Unknown]
  - Hyperhidrosis [Unknown]
  - Vision blurred [Unknown]
  - Eye pain [Unknown]
  - Off label use [Unknown]
